FAERS Safety Report 25236983 (Version 1)
Quarter: 2025Q2

REPORT INFORMATION
  Report Type: Report from Study
  Country: CA (occurrence: CA)
  Receive Date: 20250424
  Receipt Date: 20250424
  Transmission Date: 20250717
  Serious: Yes (Other)
  Sender: MERCK SHARP & DOHME LLC
  Company Number: CA-009507513-2256485

PATIENT
  Sex: Male

DRUGS (5)
  1. WELIREG [Suspect]
     Active Substance: BELZUTIFAN
     Indication: Renal cell carcinoma
     Dosage: 3TABS 40MG/ TOTAL DAILY DOSE OF 120MG
     Route: 048
     Dates: start: 2025
  2. SUNITINIB [Concomitant]
     Active Substance: SUNITINIB
  3. NIVOLUMAB [Concomitant]
     Active Substance: NIVOLUMAB
  4. CABOZANTINIB [Concomitant]
     Active Substance: CABOZANTINIB
  5. LENVATINIB [Concomitant]
     Active Substance: LENVATINIB

REACTIONS (2)
  - Transfusion [Unknown]
  - Arthralgia [Recovered/Resolved]

NARRATIVE: CASE EVENT DATE: 20250101
